FAERS Safety Report 22244610 (Version 1)
Quarter: 2023Q2

REPORT INFORMATION
  Report Type: Report from Study
  Country: ZA (occurrence: ZA)
  Receive Date: 20230424
  Receipt Date: 20230424
  Transmission Date: 20230722
  Serious: Yes (Death, Other)
  Sender: FDA-Public Use
  Company Number: ZA-AstraZeneca-2023A089197

PATIENT
  Age: 535 Day
  Sex: Female
  Weight: 8.7 kg

DRUGS (2)
  1. SYNAGIS [Suspect]
     Active Substance: PALIVIZUMAB
     Indication: Congenital absence of bile ducts
     Dosage: MONTHLY
     Route: 030
     Dates: start: 20230131
  2. SYNAGIS [Suspect]
     Active Substance: PALIVIZUMAB
     Indication: Heart disease congenital
     Route: 030
     Dates: start: 20230131

REACTIONS (1)
  - Death [Fatal]

NARRATIVE: CASE EVENT DATE: 20230413
